FAERS Safety Report 11333485 (Version 1)
Quarter: 2015Q3

REPORT INFORMATION
  Report Type: Spontaneous
  Country: US (occurrence: US)
  Receive Date: 20150803
  Receipt Date: 20150803
  Transmission Date: 20151125
  Serious: Yes (Hospitalization, Other)
  Sender: FDA-Public Use
  Company Number: US-ELI_LILLY_AND_COMPANY-US200803002086

PATIENT
  Sex: Female

DRUGS (5)
  1. ZYPREXA [Suspect]
     Active Substance: OLANZAPINE
     Dosage: 35 MG, DAILY (1/D)
     Dates: start: 200609
  2. LITHIUM. [Concomitant]
     Active Substance: LITHIUM
     Dosage: 900 MG, UNK
  3. ZYPREXA [Suspect]
     Active Substance: OLANZAPINE
     Dosage: 20 MG, DAILY (1/D)
     Dates: start: 2008
  4. PROPRANOLOL [Concomitant]
     Active Substance: PROPRANOLOL\PROPRANOLOL HYDROCHLORIDE
     Dosage: 20 MG, UNK
  5. CYMBALTA [Concomitant]
     Active Substance: DULOXETINE HYDROCHLORIDE
     Dosage: 30 MG, UNK

REACTIONS (6)
  - Prescribed overdose [Recovered/Resolved]
  - Impaired healing [Recovered/Resolved]
  - Weight increased [Unknown]
  - Hostility [Unknown]
  - Delusion [Unknown]
  - Ingrowing nail [Recovered/Resolved]

NARRATIVE: CASE EVENT DATE: 200609
